FAERS Safety Report 8213447-2 (Version None)
Quarter: 2012Q1

REPORT INFORMATION
  Report Type: 
  Country: None (occurrence: None)
  Receive Date: 20120315
  Receipt Date: 20120229
  Transmission Date: 20120608
  Serious: Yes (Hospitalization, Congenital Anomaly)
  Sender: FDA-Public Use
  Company Number: US-ROCHE-GNE323486

PATIENT

DRUGS (10)
  1. ATROVENT [Concomitant]
     Indication: TRACHEOMALACIA
     Dates: start: 20110601
  2. ALBUTEROL [Concomitant]
     Indication: BRONCHIOLITIS
     Dosage: UNK
     Route: 055
     Dates: start: 20110329, end: 20110407
  3. ALBUTEROL [Concomitant]
     Dosage: UNK
     Route: 055
     Dates: start: 20110423, end: 20110425
  4. ALBUTEROL [Concomitant]
     Dosage: UNK
     Route: 055
     Dates: start: 20110529, end: 20110601
  5. ALBUTEROL [Concomitant]
     Dosage: UNK
     Route: 055
     Dates: start: 20110423, end: 20110425
  6. OMALIZUMAB [Suspect]
     Indication: PRODUCT USED FOR UNKNOWN INDICATION
     Dosage: LAST DOSE OF 375 MG PRIOR TO SAE ADMINISTERED ON 15 AUG 2011.
     Route: 064
     Dates: start: 20060324
  7. PREVACID [Concomitant]
     Dosage: 15 ML, BID
     Route: 048
     Dates: start: 20110407
  8. ZANTAC [Concomitant]
     Indication: GASTROOESOPHAGEAL REFLUX DISEASE
     Dosage: UNK
     Route: 048
     Dates: start: 20110329, end: 20110407
  9. PREVACID [Concomitant]
     Indication: GASTROOESOPHAGEAL REFLUX DISEASE
     Dosage: 15 ML, BID
     Route: 048
     Dates: start: 20110323, end: 20110329
  10. XOPENEX [Concomitant]
     Indication: TRACHEOMALACIA
     Dates: start: 20110601

REACTIONS (1)
  - TRACHEOMALACIA [None]
